FAERS Safety Report 7962059-4 (Version None)
Quarter: 2011Q4

REPORT INFORMATION
  Report Type: 
  Country: None (occurrence: None)
  Receive Date: 20111207
  Receipt Date: 20111201
  Transmission Date: 20120403
  Serious: Yes (Hospitalization, Other)
  Sender: FDA-Public Use
  Company Number: FR-PFIZER INC-2011293172

PATIENT
  Age: 83 Year
  Sex: Female

DRUGS (3)
  1. PRAZEPAM [Concomitant]
  2. CELEBREX [Suspect]
     Indication: OSTEOARTHRITIS
     Route: 048
  3. AMLODIPINE/TELMISARTAN [Suspect]
     Indication: HYPERTENSION
     Route: 048

REACTIONS (9)
  - GENERAL PHYSICAL HEALTH DETERIORATION [None]
  - METABOLIC ACIDOSIS [None]
  - DECREASED APPETITE [None]
  - RENAL FAILURE ACUTE [None]
  - HYPERKALAEMIA [None]
  - HAEMODIALYSIS [None]
  - RENAL DISORDER [None]
  - KIDNEY SMALL [None]
  - FALL [None]
